FAERS Safety Report 4998794-X (Version None)
Quarter: 2006Q2

REPORT INFORMATION
  Report Type: 
  Country: None (occurrence: None)
  Receive Date: 20060510
  Receipt Date: 20050830
  Transmission Date: 20061013
  Serious: Yes (Hospitalization, Disabling)
  Sender: FDA-Public Use
  Company Number: US-MERCK-0508USA05030

PATIENT
  Age: 56 Year
  Sex: Male
  Weight: 109 kg

DRUGS (9)
  1. VIOXX [Suspect]
     Indication: PAIN
     Route: 048
     Dates: start: 19990101
  2. VIOXX [Suspect]
     Route: 048
     Dates: end: 20040501
  3. VIOXX [Suspect]
     Indication: ARTHRITIS
     Route: 048
     Dates: start: 19990101
  4. VIOXX [Suspect]
     Route: 048
     Dates: end: 20040501
  5. [COMPOSITION UNSPECIFIED] [Concomitant]
     Route: 065
  6. CLARITIN [Concomitant]
     Route: 065
  7. NORVASC [Concomitant]
     Route: 065
  8. PLAQUENIL [Concomitant]
     Route: 065
  9. TYLENOL [Concomitant]
     Route: 048

REACTIONS (28)
  - ANAEMIA [None]
  - ANGINA UNSTABLE [None]
  - ATRIAL FLUTTER [None]
  - BLOOD ALKALINE PHOSPHATASE INCREASED [None]
  - BRONCHITIS [None]
  - CARDIAC FAILURE CONGESTIVE [None]
  - CORONARY ARTERY DISEASE [None]
  - DEPRESSION [None]
  - DIABETIC ULCER [None]
  - DYSPNOEA [None]
  - FEMORAL ARTERY OCCLUSION [None]
  - GASTRIC ULCER HAEMORRHAGE [None]
  - GENERALISED OEDEMA [None]
  - HYPOTENSION [None]
  - HYPOTHYROIDISM [None]
  - INFECTION [None]
  - INJURY [None]
  - ISCHAEMIC CARDIOMYOPATHY [None]
  - LACERATION [None]
  - LARGE INTESTINAL ULCER HAEMORRHAGE [None]
  - LUNG NEOPLASM MALIGNANT [None]
  - MYOCARDIAL INFARCTION [None]
  - OEDEMA [None]
  - PHARYNGITIS [None]
  - REFLUX OESOPHAGITIS [None]
  - RESPIRATORY TRACT INFECTION FUNGAL [None]
  - SKIN ULCER [None]
  - UPPER RESPIRATORY TRACT INFECTION [None]
